FAERS Safety Report 10920018 (Version 3)
Quarter: 2015Q3

REPORT INFORMATION
  Report Type: Spontaneous
  Country: US (occurrence: US)
  Receive Date: 20150317
  Receipt Date: 20150724
  Transmission Date: 20151125
  Serious: No
  Sender: FDA-Public Use
  Company Number: US-009507513-1503USA007288

PATIENT
  Age: 22 Year
  Sex: Female

DRUGS (1)
  1. NEXPLANON [Suspect]
     Active Substance: ETONOGESTREL
     Dosage: 68 MG ETONOGESTREL/ 1 ROD
     Route: 059
     Dates: start: 20140113

REACTIONS (5)
  - Haemorrhage [Unknown]
  - Device deployment issue [Recovered/Resolved]
  - Mood altered [Unknown]
  - Medical device complication [Recovered/Resolved]
  - Device difficult to use [Recovered/Resolved]

NARRATIVE: CASE EVENT DATE: 20140113
